FAERS Safety Report 17157558 (Version 1)
Quarter: 2019Q4

REPORT INFORMATION
  Report Type: Spontaneous
  Country: US (occurrence: US)
  Receive Date: 20191213
  Receipt Date: 20191213
  Transmission Date: 20200122
  Serious: Yes (Other)
  Sender: FDA-Public Use
  Company Number: None

PATIENT
  Age: 63 Year
  Sex: Male

DRUGS (10)
  1. DICLOFENAC 50MG DR TABLET [Concomitant]
     Dates: start: 20190711
  2. OXYCOD/APAP 5-325MG TABLET [Concomitant]
     Dates: start: 20191211
  3. LISINOPRIL 10MG TABLET [Concomitant]
     Dates: start: 20190925
  4. OMEPRAZOLE 40MG CAPSULE [Concomitant]
     Dates: start: 20191017
  5. ORENCIA [Suspect]
     Active Substance: ABATACEPT
     Indication: GASTROOESOPHAGEAL REFLUX DISEASE
     Dosage: ?          OTHER FREQUENCY:EVERY WEEK;?
     Route: 058
     Dates: start: 20181108
  6. ORENCIA [Suspect]
     Active Substance: ABATACEPT
     Indication: RHEUMATOID ARTHRITIS
     Dosage: ?          OTHER FREQUENCY:EVERY WEEK;?
     Route: 058
     Dates: start: 20181108
  7. LINSINOPRIL 10 MG TABLET [Concomitant]
     Dates: start: 20190630
  8. CEPHALEXIN 500MG CAPSULE [Concomitant]
     Active Substance: CEPHALEXIN
     Dates: start: 20191211
  9. ORENCIA [Suspect]
     Active Substance: ABATACEPT
     Indication: ARTHRITIS
     Dosage: ?          OTHER FREQUENCY:EVERY WEEK;?
     Route: 058
     Dates: start: 20181108
  10. OMEPRAZOLE 40MG CAPSULE [Concomitant]
     Dates: start: 20190714

REACTIONS (1)
  - Therapy cessation [None]

NARRATIVE: CASE EVENT DATE: 20191212
